FAERS Safety Report 19779019 (Version 2)
Quarter: 2022Q3

REPORT INFORMATION
  Report Type: Spontaneous
  Country: US (occurrence: US)
  Receive Date: 20210902
  Receipt Date: 20220816
  Transmission Date: 20221027
  Serious: No
  Sender: FDA-Public Use
  Company Number: US-CIPLA LTD.-2020US09155

PATIENT
  Sex: Female

DRUGS (5)
  1. ALENDRONATE [Suspect]
     Active Substance: ALENDRONATE SODIUM
     Indication: Osteoporosis
     Dosage: 70 MILLIGRAM, ONCE A WEEK ON SUNDAY
     Route: 065
     Dates: start: 20191115
  2. CINSULIN ADVANCED STRENGTH [Concomitant]
     Indication: Diabetes prophylaxis
     Dosage: 2 DOSAGE FORM, QD FROM ALMOST AN YEAR
     Route: 065
     Dates: start: 2019
  3. BONE UP [Concomitant]
     Indication: Bone density abnormal
     Dosage: 4 CAPSULES A DAY FROM 6 MONTHS
     Route: 065
     Dates: start: 2020
  4. DIETARY SUPPLEMENT [Concomitant]
     Active Substance: DIETARY SUPPLEMENT
     Indication: Blood cholesterol abnormal
     Dosage: UNK/ ONE A DAY
     Route: 065
  5. VITAMINS NOS [Concomitant]
     Active Substance: VITAMINS
     Indication: Vitamin supplementation
     Dosage: UNK, ONE A DAY
     Route: 065

REACTIONS (13)
  - Weight decreased [Unknown]
  - Eructation [Not Recovered/Not Resolved]
  - Abdominal discomfort [Unknown]
  - Hyperphagia [Not Recovered/Not Resolved]
  - Body height decreased [Unknown]
  - Therapeutic response unexpected [Unknown]
  - Pain in extremity [Not Recovered/Not Resolved]
  - Myalgia [Not Recovered/Not Resolved]
  - Abdominal distension [Not Recovered/Not Resolved]
  - Abdominal pain upper [Not Recovered/Not Resolved]
  - Arthralgia [Not Recovered/Not Resolved]
  - Bone pain [Not Recovered/Not Resolved]
  - Pruritus [Not Recovered/Not Resolved]

NARRATIVE: CASE EVENT DATE: 20191101
